FAERS Safety Report 5629874-3 (Version None)
Quarter: 2008Q1

REPORT INFORMATION
  Report Type: 
  Country: None (occurrence: None)
  Receive Date: 20080214
  Receipt Date: 20070910
  Transmission Date: 20080703
  Serious: Yes (Hospitalization)
  Sender: FDA-Public Use
  Company Number: T08-USA-00504-01

PATIENT
  Age: 21 Year
  Sex: Female

DRUGS (3)
  1. CERVIDIL [Suspect]
     Indication: LABOUR INDUCTION
     Route: 067
     Dates: start: 20060920, end: 20060921
  2. ATENOLOL [Concomitant]
  3. TERBUTALINE SULFATE [Concomitant]

REACTIONS (4)
  - CAESAREAN SECTION [None]
  - COMPLICATION OF PREGNANCY [None]
  - DRUG EXPOSURE DURING PREGNANCY [None]
  - FOETAL HEART RATE DISORDER [None]
